FAERS Safety Report 6090382-X (Version None)
Quarter: 2009Q1

REPORT INFORMATION
  Report Type: 
  Country: None (occurrence: None)
  Receive Date: 20090220
  Receipt Date: 20090204
  Transmission Date: 20090719
  Serious: Yes (Hospitalization)
  Sender: FDA-Public Use
  Company Number: 8042989

PATIENT
  Age: 74 Year
  Sex: Female

DRUGS (2)
  1. PREDNISOLONE [Suspect]
     Indication: PLASMACYTOMA
     Dosage: 60 MG/M2
  2. MELPHALAN [Suspect]
     Indication: PLASMACYTOMA
     Dosage: 9 MG/M2
     Route: 042

REACTIONS (5)
  - BLOOD SODIUM DECREASED [None]
  - DIARRHOEA [None]
  - HAEMODIALYSIS [None]
  - PANCYTOPENIA [None]
  - TUMOUR LYSIS SYNDROME [None]
